FAERS Safety Report 17422080 (Version 1)
Quarter: 2020Q1

REPORT INFORMATION
  Report Type: Report from Study
  Country: US (occurrence: US)
  Receive Date: 20200214
  Receipt Date: 20200214
  Transmission Date: 20200409
  Serious: Yes (Death, Other)
  Sender: FDA-Public Use
  Company Number: US-GILEAD-2020-0445825

PATIENT
  Age: 65 Year
  Sex: Male

DRUGS (1)
  1. AZTREONAM LYSINE [Suspect]
     Active Substance: AZTREONAM LYSINE
     Indication: CYSTIC FIBROSIS
     Dosage: 75 MG THREE TIMES DAILY EVERY OTHER MONTH
     Route: 055

REACTIONS (2)
  - Off label use [Not Recovered/Not Resolved]
  - Death [Fatal]
